FAERS Safety Report 16384190 (Version 2)
Quarter: 2021Q3

REPORT INFORMATION
  Report Type: Spontaneous
  Country: FR (occurrence: FR)
  Receive Date: 20190603
  Receipt Date: 20210720
  Transmission Date: 20211014
  Serious: Yes (Hospitalization)
  Sender: FDA-Public Use
  Company Number: FR-MYLANLABS-2019M1051981

PATIENT
  Age: 38 Year
  Sex: Male
  Weight: 100 kg

DRUGS (6)
  1. RISPERDAL [Suspect]
     Active Substance: RISPERIDONE
     Indication: PRODUCT USED FOR UNKNOWN INDICATION
     Dosage: 6 MG,QD
     Route: 048
     Dates: start: 20120711, end: 20120716
  2. RISPERDAL [Suspect]
     Active Substance: RISPERIDONE
     Dosage: 4 MG,QD
     Route: 048
     Dates: start: 20120329, end: 20120710
  3. BACLOFEN. [Suspect]
     Active Substance: BACLOFEN
     Dosage: 240 MG,QD
     Route: 048
     Dates: start: 20120305, end: 20120718
  4. RISPERDAL [Suspect]
     Active Substance: RISPERIDONE
     Dosage: 1 MG,QD
     Route: 048
     Dates: start: 20120223, end: 20120229
  5. BACLOFEN. [Suspect]
     Active Substance: BACLOFEN
     Indication: ALCOHOLISM
     Dosage: 120 MG,QD
     Route: 048
     Dates: start: 20111205
  6. RISPERDAL [Suspect]
     Active Substance: RISPERIDONE
     Dosage: 2 MG,QD
     Route: 048
     Dates: start: 20120301, end: 20120328

REACTIONS (3)
  - Hypertriglyceridaemia [Recovering/Resolving]
  - Hypercholesterolaemia [Recovering/Resolving]
  - Weight increased [Unknown]

NARRATIVE: CASE EVENT DATE: 20120315
